FAERS Safety Report 9706624 (Version 1)
Quarter: 2013Q4

REPORT INFORMATION
  Report Type: Report from Study
  Country: GB (occurrence: GB)
  Receive Date: 20131125
  Receipt Date: 20131125
  Transmission Date: 20140711
  Serious: Yes (Other)
  Sender: FDA-Public Use
  Company Number: GB-AMGEN-GBRCT2013082944

PATIENT
  Age: 16 Year
  Sex: Male

DRUGS (4)
  1. ETANERCEPT [Suspect]
     Indication: PRODUCT USED FOR UNKNOWN INDICATION
     Dosage: 16 MG, 2 TIMES/WK
     Route: 065
     Dates: start: 20070410
  2. METHOTREXATE [Concomitant]
     Dosage: UNK
     Dates: start: 20060801
  3. IBUPROFEN [Concomitant]
     Dosage: UNK
  4. PAMIDRONATE DISODIUM [Concomitant]
     Dosage: UNK

REACTIONS (2)
  - Bone neoplasm [Unknown]
  - Cartilage neoplasm [Unknown]
